FAERS Safety Report 11029773 (Version 1)
Quarter: 2015Q2

REPORT INFORMATION
  Report Type: Spontaneous
  Country: US (occurrence: None)
  Receive Date: 20150413
  Receipt Date: 20150413
  Transmission Date: 20150821
  Serious: Yes (Other)
  Sender: FDA-Public Use
  Company Number: DEP_02575_2015

PATIENT
  Age: 68 Year
  Sex: Male
  Weight: 122.47 kg

DRUGS (13)
  1. AMLODIPINE [Concomitant]
     Active Substance: AMLODIPINE BESYLATE
  2. ROPINIROLE. [Concomitant]
     Active Substance: ROPINIROLE
  3. GRALISE [Suspect]
     Active Substance: GABAPENTIN
     Indication: OFF LABEL USE
     Dosage: SAMPLE PACK, TITRATED UP TO 1200MG , ONCE DAILY ORAL
     Dates: start: 20150224, end: 20150313
  4. METANX [Concomitant]
     Active Substance: LEVOMEFOLATE CALCIUM\METHYLCOBALAMIN\PYRIDOXAL PHOSPHATE ANHYDROUS
  5. FISH OIL [Concomitant]
     Active Substance: FISH OIL
  6. B 12-VITAMINS [Concomitant]
  7. ASPIRIN. [Concomitant]
     Active Substance: ASPIRIN
  8. PREDNISONE. [Concomitant]
     Active Substance: PREDNISONE
  9. GRALISE [Suspect]
     Active Substance: GABAPENTIN
     Indication: NEUROPATHY PERIPHERAL
     Dosage: SAMPLE PACK, TITRATED UP TO 1200MG , ONCE DAILY ORAL
     Dates: start: 20150224, end: 20150313
  10. FENOFIBRATE. [Concomitant]
     Active Substance: FENOFIBRATE
  11. ACETAMINOPHEN W/HYDROCODONE [Concomitant]
     Active Substance: ACETAMINOPHEN\HYDROCODONE
  12. GRALISE [Suspect]
     Active Substance: GABAPENTIN
     Indication: NEURALGIA
     Dosage: SAMPLE PACK, TITRATED UP TO 1200MG , ONCE DAILY ORAL
     Dates: start: 20150224, end: 20150313
  13. HYDROXYCHOROQUINE [Concomitant]

REACTIONS (6)
  - Drug ineffective [None]
  - Skin tightness [None]
  - Joint swelling [None]
  - Skin discolouration [None]
  - Feeling hot [None]
  - Peripheral swelling [None]

NARRATIVE: CASE EVENT DATE: 20150228
